FAERS Safety Report 13284077 (Version 4)
Quarter: 2017Q3

REPORT INFORMATION
  Report Type: Spontaneous
  Country: JP (occurrence: JP)
  Receive Date: 20170301
  Receipt Date: 20170721
  Transmission Date: 20171127
  Serious: Yes (Death, Other)
  Sender: FDA-Public Use
  Company Number: JP-BRISTOL-MYERS SQUIBB COMPANY-BMS-2017-016703

PATIENT
  Age: 85 Year
  Sex: Male
  Weight: 69.9 kg

DRUGS (15)
  1. FEBURIC [Concomitant]
     Active Substance: FEBUXOSTAT
     Indication: PRODUCT USED FOR UNKNOWN INDICATION
     Dosage: 20 MG, QD
     Route: 048
     Dates: start: 20161228, end: 20170220
  2. TAKECAB [Concomitant]
     Active Substance: VONOPRAZAN FUMURATE
     Indication: PRODUCT USED FOR UNKNOWN INDICATION
     Route: 065
  3. ELIQUIS [Suspect]
     Active Substance: APIXABAN
     Indication: PRODUCT USED FOR UNKNOWN INDICATION
     Dosage: 2.5 MG, BID
     Route: 048
     Dates: start: 20161228, end: 20170220
  4. CELECOX [Concomitant]
     Active Substance: CELECOXIB
     Indication: PRODUCT USED FOR UNKNOWN INDICATION
     Dosage: 100 MG, BID
     Route: 048
     Dates: start: 20161228, end: 20170220
  5. BISOPROLOL FUMARATE. [Concomitant]
     Active Substance: BISOPROLOL FUMARATE
     Indication: PRODUCT USED FOR UNKNOWN INDICATION
     Dosage: 2.5 MG, QD
     Route: 048
     Dates: start: 20161228
  6. WARFARIN POTASSIUM [Suspect]
     Active Substance: WARFARIN POTASSIUM
     Indication: PRODUCT USED FOR UNKNOWN INDICATION
     Dosage: UNK
     Route: 065
  7. WARFARIN POTASSIUM [Suspect]
     Active Substance: WARFARIN POTASSIUM
     Indication: PRODUCT USED FOR UNKNOWN INDICATION
     Dosage: 2.5 MG, QD
     Route: 065
     Dates: start: 20170303
  8. NAFTOPIDIL [Concomitant]
     Active Substance: NAFTOPIDIL
     Indication: PRODUCT USED FOR UNKNOWN INDICATION
     Dosage: 50 MG, QD
     Route: 048
     Dates: start: 20161228
  9. LANSOPRAZOLE. [Concomitant]
     Active Substance: LANSOPRAZOLE
     Indication: PRODUCT USED FOR UNKNOWN INDICATION
     Dosage: 15 MG, QD
     Route: 048
     Dates: start: 20161228, end: 20170126
  10. BI SIFROL [Concomitant]
     Active Substance: PRAMIPEXOLE
     Indication: PRODUCT USED FOR UNKNOWN INDICATION
     Route: 065
  11. MIYA-BM [Concomitant]
     Active Substance: CLOSTRIDIUM BUTYRICUM SPORES STRAIN M-55
     Indication: PRODUCT USED FOR UNKNOWN INDICATION
     Route: 065
  12. MAGNESIUM OXIDE. [Concomitant]
     Active Substance: MAGNESIUM OXIDE
     Indication: PRODUCT USED FOR UNKNOWN INDICATION
     Dosage: 330 MG, TID
     Route: 048
     Dates: start: 20161228, end: 20170220
  13. WARFARIN POTASSIUM [Suspect]
     Active Substance: WARFARIN POTASSIUM
     Indication: PRODUCT USED FOR UNKNOWN INDICATION
     Dosage: 2.5 MG, QD
     Route: 065
     Dates: start: 20170220, end: 20170228
  14. XYZAL [Concomitant]
     Active Substance: LEVOCETIRIZINE DIHYDROCHLORIDE
     Indication: PRODUCT USED FOR UNKNOWN INDICATION
     Dosage: 5 MG, QD
     Route: 048
     Dates: start: 20161228, end: 20170220
  15. REBAMIPIDE [Concomitant]
     Active Substance: REBAMIPIDE
     Indication: PRODUCT USED FOR UNKNOWN INDICATION
     Dosage: 100 MG, BID
     Route: 048
     Dates: start: 20161228, end: 20170220

REACTIONS (12)
  - Pancytopenia [Fatal]
  - Sepsis [Unknown]
  - Bone marrow failure [Fatal]
  - Haemorrhagic anaemia [Unknown]
  - Pleural effusion [Unknown]
  - Pneumonia aspiration [Unknown]
  - Pyelonephritis [Unknown]
  - Vertebroplasty [Unknown]
  - Anaemia [Fatal]
  - Transfusion [Unknown]
  - Acute kidney injury [Unknown]
  - Multiple organ dysfunction syndrome [Unknown]

NARRATIVE: CASE EVENT DATE: 20170111
